FAERS Safety Report 19934872 (Version 1)
Quarter: 2021Q4

REPORT INFORMATION
  Report Type: Spontaneous
  Country: US (occurrence: US)
  Receive Date: 20211008
  Receipt Date: 20211008
  Transmission Date: 20220303
  Serious: Yes (Other)
  Sender: FDA-Public Use
  Company Number: US-CELGENE-USA-20211000857

PATIENT
  Sex: Male
  Weight: 111.23 kg

DRUGS (4)
  1. REVLIMID [Suspect]
     Active Substance: LENALIDOMIDE
     Indication: Plasma cell myeloma
     Dosage: 20 MILLIGRAM
     Route: 048
     Dates: start: 200902
  2. REVLIMID [Suspect]
     Active Substance: LENALIDOMIDE
     Dosage: 20 MILLIGRAM
     Route: 048
     Dates: start: 200912
  3. REVLIMID [Suspect]
     Active Substance: LENALIDOMIDE
     Dosage: 10-15 MILLIGRAM
     Route: 048
     Dates: start: 201102
  4. REVLIMID [Suspect]
     Active Substance: LENALIDOMIDE
     Dosage: 5 MILLIGRAM
     Route: 048
     Dates: start: 201804

REACTIONS (2)
  - Arthropathy [Unknown]
  - Hepatic steatosis [Unknown]
